FAERS Safety Report 7829823-3 (Version None)
Quarter: 2011Q4

REPORT INFORMATION
  Report Type: 
  Country: None (occurrence: None)
  Receive Date: 20111019
  Receipt Date: 20111010
  Transmission Date: 20120403
  Serious: Yes (Other)
  Sender: FDA-Public Use
  Company Number: 1000024570

PATIENT
  Age: 21 Year
  Sex: Female

DRUGS (3)
  1. ADDERALL (OBETROL) [Concomitant]
  2. KLONOPIN [Concomitant]
  3. VIIBYRD (VILAZODONE) (10 MILLIGRAM, TABLETS) [Suspect]
     Indication: DEPRESSION
     Dosage: 10 MG (10 MG, 1 IN 1 D), ORAL
     Route: 048
     Dates: start: 20110720, end: 20110701

REACTIONS (1)
  - SUICIDAL IDEATION [None]
